FAERS Safety Report 8602171-X (Version None)
Quarter: 2012Q3

REPORT INFORMATION
  Report Type: 
  Country: None (occurrence: None)
  Receive Date: 20120817
  Receipt Date: 20120807
  Transmission Date: 20120928
  Serious: Yes (Hospitalization)
  Sender: FDA-Public Use
  Company Number: FR-AMGEN-FRASP2011068194

PATIENT
  Age: 86 Year
  Sex: Female

DRUGS (13)
  1. MICARDIS [Concomitant]
     Dosage: UNK
  2. TRAMADOL HCL [Concomitant]
     Dosage: 200 MG, 2X/DAY
  3. ACETAMINOPHEN [Concomitant]
     Dosage: 1 G, 3X/DAY
  4. CACIT D3 [Concomitant]
     Dosage: 1 DF, 1X/DAY
  5. CLONAZEPAM [Concomitant]
     Dosage: 5 GTT, 1X/DAY
  6. OXYBUTYNIN [Concomitant]
     Dosage: 2.5 MG, 3X/DAY
  7. ENBREL [Suspect]
     Indication: RHEUMATOID ARTHRITIS
     Dosage: UNK
     Route: 058
     Dates: start: 20070101, end: 20101213
  8. PREDNISONE TAB [Concomitant]
     Dosage: 7 MG, 1X/DAY
  9. TRAMADOL HCL [Concomitant]
     Dosage: 200 MG, 2X/DAY
  10. EFFERALGAN                         /00020001/ [Concomitant]
     Dosage: 1 G, 3X/DAY
  11. SULFASALAZINE [Suspect]
     Indication: RHEUMATOID ARTHRITIS
     Dosage: 2 DF, 2X/DAY
     Route: 048
     Dates: start: 20070701, end: 20101203
  12. FOSAMAX [Concomitant]
     Dosage: 70 MG, WEEKLY
  13. FERROUS SULFATE TAB [Concomitant]
     Dosage: 1 DF, 1X/DAY

REACTIONS (5)
  - RASH [None]
  - RHEUMATOID ARTHRITIS [None]
  - ERYTHEMA MULTIFORME [None]
  - TOXIC SKIN ERUPTION [None]
  - DERMATITIS EXFOLIATIVE [None]
